FAERS Safety Report 6167653-1 (Version None)
Quarter: 2009Q2

REPORT INFORMATION
  Report Type: 
  Country: None (occurrence: None)
  Receive Date: 20090424
  Receipt Date: 20090424
  Transmission Date: 20091009
  Serious: Yes (Hospitalization)
  Sender: FDA-Public Use
  Company Number: PHHO2005NO01393

PATIENT
  Sex: Female
  Weight: 69 kg

DRUGS (12)
  1. CIBADREX T29368+ [Suspect]
     Indication: HYPERTENSION
     Dosage: LEVEL 1
     Route: 048
     Dates: start: 20040316, end: 20040415
  2. CIBADREX T29368+ [Suspect]
     Dosage: LEVEL 2
     Route: 048
     Dates: start: 20040416, end: 20040513
  3. CIBADREX T29368+ [Suspect]
     Dosage: LEVEL 3
     Route: 048
     Dates: start: 20040514, end: 20050122
  4. ATENOLOL [Concomitant]
     Indication: HYPERTENSION
     Dosage: 25 MG, UNK
     Dates: start: 20040614, end: 20041117
  5. ATENOLOL [Concomitant]
     Dosage: 100 MG, UNK
     Dates: start: 20041118, end: 20041129
  6. ATENOLOL [Concomitant]
     Dosage: 50 MG, UNK
     Dates: start: 20041130, end: 20050122
  7. LASIX [Concomitant]
     Indication: HYPERTENSION
     Dosage: UNK, UNK
     Route: 048
     Dates: start: 20041118
  8. DIGITOXIN TAB [Concomitant]
     Indication: ATRIAL FIBRILLATION
     Dosage: 0.1 MG, 1X1
     Route: 048
     Dates: start: 19951011
  9. DIGITOXIN TAB [Concomitant]
     Dosage: 0.1 MG, 1X1
     Route: 048
     Dates: start: 19951011
  10. MAREVAN [Concomitant]
     Indication: ATRIAL FIBRILLATION
     Dosage: 2.5 MG, UNK
     Route: 048
     Dates: start: 19950921
  11. AMARYL [Concomitant]
     Indication: DIABETES MELLITUS
     Dosage: UNK, UNK
     Route: 048
     Dates: start: 20030508
  12. GLUCOPHAGE [Concomitant]
     Indication: DIABETES MELLITUS
     Dosage: 500 MG, UNK
     Route: 048
     Dates: start: 19990118

REACTIONS (4)
  - AORTIC STENOSIS [None]
  - EJECTION FRACTION ABNORMAL [None]
  - HYPOTENSION [None]
  - SYNCOPE [None]
